FAERS Safety Report 7424571-6 (Version None)
Quarter: 2011Q2

REPORT INFORMATION
  Report Type: 
  Country: None (occurrence: None)
  Receive Date: 20110419
  Receipt Date: 20110413
  Transmission Date: 20111010
  Serious: Yes (Hospitalization)
  Sender: FDA-Public Use
  Company Number: US-US-EMD SERONO, INC.-7053075

PATIENT
  Sex: Female

DRUGS (5)
  1. UNSPECIFIED MEDICATIONS [Concomitant]
     Indication: DIABETES MELLITUS
  2. UNSPECIFIED MEDICATIONS [Concomitant]
     Indication: DEPRESSION
  3. REBIF [Suspect]
     Indication: PRODUCT USED FOR UNKNOWN INDICATION
     Route: 058
     Dates: start: 20090409
  4. UNSPECIFIED MEDICATIONS [Concomitant]
     Indication: BLOOD CHOLESTEROL INCREASED
  5. UNSPECIFIED MEDICATIONS [Concomitant]
     Indication: HYPERTENSION

REACTIONS (4)
  - ABDOMINAL PAIN UPPER [None]
  - PALPITATIONS [None]
  - REFLUX OESOPHAGITIS [None]
  - CHILLS [None]
